FAERS Safety Report 8083696-5 (Version None)
Quarter: 2012Q1

REPORT INFORMATION
  Report Type: 
  Country: None (occurrence: None)
  Receive Date: 20120127
  Receipt Date: 20110113
  Transmission Date: 20120608
  Serious: No
  Sender: FDA-Public Use
  Company Number: US-ABBOTT-11P-163-0696954-00

PATIENT
  Sex: Male
  Weight: 118.04 kg

DRUGS (9)
  1. AVAPRO [Concomitant]
     Indication: HYPERTENSION
     Route: 048
  2. HUMIRA [Suspect]
     Indication: PSORIASIS
     Route: 058
     Dates: start: 20110106
  3. GEMFIBROZIL [Concomitant]
     Indication: BLOOD CHOLESTEROL INCREASED
     Route: 048
  4. INDOMETHACIN [Concomitant]
     Indication: PRODUCT USED FOR UNKNOWN INDICATION
     Route: 048
  5. OMEPRAZOLE [Concomitant]
     Indication: GASTROOESOPHAGEAL REFLUX DISEASE
     Route: 048
  6. ALLOPURINOL [Concomitant]
     Indication: GOUT
     Route: 048
  7. FELODIPINE [Concomitant]
     Indication: HYPERTENSION
     Route: 048
  8. NIACIN [Concomitant]
     Indication: PRODUCT USED FOR UNKNOWN INDICATION
     Route: 048
  9. COLCHICINE [Concomitant]
     Indication: GOUT
     Route: 048

REACTIONS (3)
  - IRRITABILITY [None]
  - STRESS AT WORK [None]
  - MALAISE [None]
